FAERS Safety Report 7297238-5 (Version None)
Quarter: 2011Q1

REPORT INFORMATION
  Report Type: 
  Country: None (occurrence: None)
  Receive Date: 20110216
  Receipt Date: 20110125
  Transmission Date: 20110831
  Serious: No
  Sender: FDA-Public Use
  Company Number: US-B.I. PHARMACEUTICALS,INC./RIDGEFIELD-2011-BP-02654BP

PATIENT
  Sex: Male

DRUGS (7)
  1. DIOVAN [Concomitant]
     Indication: HYPERTENSION
  2. HYDRALAZINE [Concomitant]
     Indication: HYPERTENSION
  3. CARVEDILOL [Concomitant]
     Indication: CARDIAC DISORDER
  4. LORAZEPAM [Concomitant]
     Indication: ANXIETY
  5. PRADAXA [Suspect]
     Indication: ATRIAL FIBRILLATION
     Dosage: 300 MG
     Route: 048
     Dates: start: 20101101
  6. FUROSEMIDE [Concomitant]
     Indication: DIURETIC THERAPY
  7. GLIPIZIDE [Concomitant]
     Indication: DIABETES MELLITUS

REACTIONS (3)
  - ARTHRALGIA [None]
  - HAEMATOMA [None]
  - RASH [None]
